FAERS Safety Report 13274021 (Version 1)
Quarter: 2017Q1

REPORT INFORMATION
  Report Type: Spontaneous
  Country: CH (occurrence: CH)
  Receive Date: 20170227
  Receipt Date: 20170227
  Transmission Date: 20170428
  Serious: Yes (Other)
  Sender: FDA-Public Use
  Company Number: CH-SA-2017SA030496

PATIENT
  Age: 30 Year
  Sex: Female

DRUGS (5)
  1. STILNOX [Suspect]
     Active Substance: ZOLPIDEM TARTRATE
     Route: 048
  2. TEMESTA [Suspect]
     Active Substance: LORAZEPAM
     Route: 048
  3. TRITTICO [Suspect]
     Active Substance: TRAZODONE HYDROCHLORIDE
     Route: 048
  4. ZOLOFT [Suspect]
     Active Substance: SERTRALINE HYDROCHLORIDE
     Route: 048
  5. CALCIMAGON [Suspect]
     Active Substance: CALCIUM
     Route: 048

REACTIONS (1)
  - Exposure during pregnancy [Unknown]
